FAERS Safety Report 14122945 (Version 1)
Quarter: 2017Q4

REPORT INFORMATION
  Report Type: Spontaneous
  Country: AU (occurrence: AU)
  Receive Date: 20171025
  Receipt Date: 20171025
  Transmission Date: 20180321
  Serious: Yes (Other)
  Sender: FDA-Public Use
  Company Number: AU-STRIDES ARCOLAB LIMITED-2017SP013485

PATIENT

DRUGS (3)
  1. BELATACEPT [Suspect]
     Active Substance: BELATACEPT
     Indication: RENAL TRANSPLANT
     Dosage: UNK
     Route: 065
  2. PREDNISOLONE. [Suspect]
     Active Substance: PREDNISOLONE
     Indication: RENAL TRANSPLANT
     Dosage: 5 MG, DAILY
     Route: 065
  3. MYCOPHENOLATE MOFETIL. [Suspect]
     Active Substance: MYCOPHENOLATE MOFETIL
     Indication: RENAL TRANSPLANT
     Dosage: UNK
     Route: 065

REACTIONS (9)
  - Lymphadenopathy [Recovered/Resolved]
  - Renal transplant failure [Unknown]
  - Human herpesvirus 8 infection [Unknown]
  - Transplant rejection [Unknown]
  - Skin mass [Recovered/Resolved]
  - Hyperkeratosis [Recovered/Resolved]
  - Kaposi^s sarcoma [Recovered/Resolved]
  - Skin ulcer [Recovered/Resolved]
  - Oedema [Recovered/Resolved]
